FAERS Safety Report 13593941 (Version 3)
Quarter: 2017Q2

REPORT INFORMATION
  Report Type: Report from Study
  Country: JP (occurrence: JP)
  Receive Date: 20170530
  Receipt Date: 20170622
  Transmission Date: 20170830
  Serious: Yes (Death, Other)
  Sender: FDA-Public Use
  Company Number: JP-OTSUKA-2017_011455

PATIENT
  Age: 84 Year
  Sex: Male
  Weight: 40.4 kg

DRUGS (19)
  1. TOLVAPTAN [Suspect]
     Active Substance: TOLVAPTAN
     Indication: FLUID RETENTION
     Dosage: 7.5 MG, QD, IN THE MORNING
     Route: 048
     Dates: start: 20150410, end: 20150803
  2. KANAMYCIN [Concomitant]
     Active Substance: KANAMYCIN\KANAMYCIN A SULFATE
     Indication: PROPHYLAXIS
     Dosage: 1500 MG, QD
     Route: 048
     Dates: start: 20150704, end: 20150803
  3. LIXIANA [Suspect]
     Active Substance: EDOXABAN TOSYLATE
     Indication: PRODUCT USED FOR UNKNOWN INDICATION
     Dosage: 30 MG, QD
     Route: 048
     Dates: end: 20150715
  4. SPIRONOLACTONE. [Concomitant]
     Active Substance: SPIRONOLACTONE
     Indication: FLUID RETENTION
     Dosage: 50 MG, QD
     Route: 048
     Dates: start: 20150408, end: 20150622
  5. DIART [Concomitant]
     Active Substance: AZOSEMIDE
     Indication: FLUID RETENTION
     Dosage: 60 MG, QD
     Route: 048
     Dates: start: 20150428, end: 20150624
  6. FLUITRAN [Concomitant]
     Active Substance: TRICHLORMETHIAZIDE
     Indication: FLUID RETENTION
     Dosage: 2 MG, QD
     Route: 048
     Dates: start: 20150514, end: 20150803
  7. URSODEOXYCHOLIC ACID [Concomitant]
     Active Substance: URSODIOL
     Indication: PRODUCT USED FOR UNKNOWN INDICATION
     Dosage: 200 MG, QD
     Route: 048
     Dates: end: 20150803
  8. SPIRONOLACTONE. [Concomitant]
     Active Substance: SPIRONOLACTONE
     Dosage: 75 MG, QD
     Route: 048
     Dates: start: 20150623, end: 20150803
  9. MIYA-BM [Concomitant]
     Active Substance: CLOSTRIDIUM BUTYRICUM SPORES STRAIN M-55
     Indication: PRODUCT USED FOR UNKNOWN INDICATION
     Dosage: 60 MG, QD
     Route: 048
     Dates: end: 20150803
  10. FUROSEMIDE. [Concomitant]
     Active Substance: FUROSEMIDE
     Indication: FLUID RETENTION
     Dosage: 20 MG, QD
     Route: 048
     Dates: start: 20150408, end: 20150803
  11. NEXIUM [Concomitant]
     Active Substance: ESOMEPRAZOLE MAGNESIUM
     Indication: PRODUCT USED FOR UNKNOWN INDICATION
     Dosage: 20 MG, QD
     Route: 048
     Dates: start: 20150323, end: 20150803
  12. ASPARA POTASSIUM [Concomitant]
     Active Substance: POTASSIUM ASPARTATE
     Dosage: 1800 MG, QD
     Route: 048
     Dates: end: 20150407
  13. BRANUTE [Concomitant]
     Indication: PRODUCT USED FOR UNKNOWN INDICATION
     Dosage: 9.46 G, QD
     Route: 048
     Dates: end: 20150803
  14. FLUITRAN [Concomitant]
     Active Substance: TRICHLORMETHIAZIDE
     Dosage: 2 MG, QD
     Route: 048
     Dates: end: 20150407
  15. BROTIZOLAM [Concomitant]
     Active Substance: BROTIZOLAM
     Indication: PRODUCT USED FOR UNKNOWN INDICATION
     Dosage: 2.5 MG, QD
     Route: 048
     Dates: end: 20150802
  16. TOLVAPTAN [Suspect]
     Active Substance: TOLVAPTAN
     Indication: HEPATIC CIRRHOSIS
     Dosage: 3.75 MG, QD, IN THE MORNING
     Route: 048
     Dates: start: 20150408, end: 20150409
  17. SPIRONOLACTONE. [Concomitant]
     Active Substance: SPIRONOLACTONE
     Dosage: 25 MG, QD
     Route: 048
     Dates: end: 20150407
  18. ASPARA POTASSIUM [Concomitant]
     Active Substance: POTASSIUM ASPARTATE
     Indication: PRODUCT USED FOR UNKNOWN INDICATION
     Dosage: 2700 MG, QD
     Route: 048
     Dates: start: 20150408, end: 20150803
  19. LACTULOSE. [Concomitant]
     Active Substance: LACTULOSE
     Indication: PROPHYLAXIS
     Dosage: 30 ML, QD
     Route: 048
     Dates: start: 20150630, end: 20150803

REACTIONS (9)
  - Hepatic encephalopathy [Recovering/Resolving]
  - Azotaemia [Fatal]
  - Acute respiratory failure [Fatal]
  - Hepatic encephalopathy [Recovering/Resolving]
  - Hyperbilirubinaemia [Recovering/Resolving]
  - Aspartate aminotransferase increased [Fatal]
  - Pneumonia [Fatal]
  - Thrombocytopenia [Fatal]
  - Epistaxis [Recovered/Resolved]

NARRATIVE: CASE EVENT DATE: 20150630
